FAERS Safety Report 11814570 (Version 1)
Quarter: 2015Q4

REPORT INFORMATION
  Report Type: Spontaneous
  Country: IL (occurrence: IL)
  Receive Date: 20151209
  Receipt Date: 20151209
  Transmission Date: 20160305
  Serious: Yes (Hospitalization, Other)
  Sender: FDA-Public Use
  Company Number: IL-SHIRE-IL201515700

PATIENT
  Sex: Female

DRUGS (1)
  1. VPRIV [Suspect]
     Active Substance: VELAGLUCERASE ALFA
     Indication: GAUCHER^S DISEASE
     Dosage: UNK, OTHER (TOTAL OF 2000 UNITS PER MONTH)
     Route: 041
     Dates: start: 201303

REACTIONS (5)
  - Pelvic fracture [Unknown]
  - Rib fracture [Unknown]
  - Road traffic accident [Recovered/Resolved]
  - Facial bones fracture [Unknown]
  - Inappropriate schedule of drug administration [Not Recovered/Not Resolved]

NARRATIVE: CASE EVENT DATE: 201303
